FAERS Safety Report 16936879 (Version 1)
Quarter: 2019Q4

REPORT INFORMATION
  Report Type: Spontaneous
  Country: US (occurrence: US)
  Receive Date: 20191018
  Receipt Date: 20191018
  Transmission Date: 20200122
  Serious: No
  Sender: FDA-Public Use
  Company Number: US-BAUSCH-BL-2019-056899

PATIENT
  Age: 79 Year
  Sex: Male

DRUGS (4)
  1. APRISO [Suspect]
     Active Substance: MESALAMINE
     Dosage: 4 CAPSULES DAILY AT THE SAME TIME
     Route: 048
     Dates: start: 2019
  2. COUMADIN [Concomitant]
     Active Substance: WARFARIN SODIUM
     Indication: PRODUCT USED FOR UNKNOWN INDICATION
  3. APRISO [Suspect]
     Active Substance: MESALAMINE
     Indication: COLITIS
     Dosage: 1 OR 2 CAPSULES DAILY
     Route: 048
     Dates: start: 20190916, end: 2019
  4. APRISO [Suspect]
     Active Substance: MESALAMINE
     Dosage: DOSE INCREASED; TOOK 2 CAPSULES IN THE MORNING AND 2 CAPSULES AT NIGHT
     Route: 048
     Dates: start: 2019, end: 2019

REACTIONS (3)
  - Dyspepsia [Unknown]
  - Incorrect dose administered [Unknown]
  - Inappropriate schedule of product administration [Unknown]

NARRATIVE: CASE EVENT DATE: 2019
